FAERS Safety Report 8513931-8 (Version None)
Quarter: 2012Q3

REPORT INFORMATION
  Report Type: 
  Country: None (occurrence: None)
  Receive Date: 20120717
  Receipt Date: 20120627
  Transmission Date: 20120928
  Serious: Yes (Hospitalization)
  Sender: FDA-Public Use
  Company Number: JP-MSD-1207JPN000214

PATIENT

DRUGS (6)
  1. GLIMICRON [Concomitant]
     Dosage: 40 MG, UNK
     Dates: start: 20110311
  2. SITAGLIPTIN PHOSPHATE [Suspect]
     Indication: TYPE 2 DIABETES MELLITUS
     Dosage: 50 MG, QD
     Route: 048
     Dates: start: 20110311
  3. LIVALO [Concomitant]
  4. MAGLAX (MAGNESIUM OXIDE) [Concomitant]
     Dosage: UNK
     Dates: start: 20110819
  5. GLIMICRON [Concomitant]
     Dosage: 80 MG, UNK
     Dates: end: 20110310
  6. METFORMIN HCL [Concomitant]
     Dosage: UNK
     Dates: start: 20110513

REACTIONS (1)
  - HAND FRACTURE [None]
